FAERS Safety Report 8573526-7 (Version None)
Quarter: 2012Q3

REPORT INFORMATION
  Report Type: 
  Country: None (occurrence: None)
  Receive Date: 20120806
  Receipt Date: 20091227
  Transmission Date: 20120928
  Serious: Yes (Other)
  Sender: FDA-Public Use
  Company Number: DE-CELGENEUS-062-21880-12060640

PATIENT
  Age: 78 Year
  Sex: Male
  Weight: 84 kg

DRUGS (12)
  1. REVLIMID [Suspect]
     Indication: MULTIPLE MYELOMA
     Dosage: 10 MILLIGRAM
     Route: 048
     Dates: start: 20090108
  2. ASPIRIN [Concomitant]
     Route: 065
     Dates: start: 20090402
  3. ASPIRIN [Concomitant]
     Route: 065
     Dates: start: 20090617
  4. ASPIRIN [Concomitant]
     Route: 065
     Dates: start: 20090812, end: 20090901
  5. REVLIMID [Suspect]
     Route: 048
     Dates: start: 20090909, end: 20090929
  6. DEXAMETHASONE [Concomitant]
     Route: 048
     Dates: start: 20090909, end: 20090929
  7. ASPIRIN [Concomitant]
     Route: 065
     Dates: start: 20090305
  8. RED BLOOD CELLS [Concomitant]
     Route: 065
  9. ASPIRIN [Concomitant]
     Indication: ANTICOAGULANT THERAPY
     Route: 065
     Dates: start: 20090205, end: 20090225
  10. ASPIRIN [Concomitant]
     Route: 065
     Dates: start: 20090505
  11. ASPIRIN [Concomitant]
     Route: 065
     Dates: start: 20090715
  12. DEXAMETHASONE [Concomitant]
     Indication: MULTIPLE MYELOMA
     Route: 048
     Dates: start: 20090108

REACTIONS (15)
  - NEURALGIA [None]
  - DISEASE PROGRESSION [None]
  - INFECTION [None]
  - MUCOSAL INFLAMMATION [None]
  - THROMBOCYTOPENIA [None]
  - LEUKOPENIA [None]
  - GRANULOCYTOPENIA [None]
  - BLOOD CREATININE INCREASED [None]
  - ANAEMIA [None]
  - HICCUPS [None]
  - PERIPHERAL SENSORY NEUROPATHY [None]
  - ALOPECIA [None]
  - RETINAL DISORDER [None]
  - NAUSEA [None]
  - GASTROINTESTINAL HAEMORRHAGE [None]
